FAERS Safety Report 9640753 (Version 2)
Quarter: 2015Q4

REPORT INFORMATION
  Report Type: Report from Study
  Country: PR (occurrence: PR)
  Receive Date: 20131023
  Receipt Date: 20151023
  Transmission Date: 20160305
  Serious: No
  Sender: FDA-Public Use
  Company Number: PR-ABBVIE-13P-131-1132690-00

PATIENT
  Sex: Female

DRUGS (1)
  1. LUPRON DEPOT [Suspect]
     Active Substance: LEUPROLIDE ACETATE
     Indication: PRODUCT USED FOR UNKNOWN INDICATION
     Route: 065

REACTIONS (4)
  - Blood cholesterol increased [Unknown]
  - Mucous membrane disorder [Unknown]
  - Hypersensitivity [Unknown]
  - Nausea [Unknown]
